FAERS Safety Report 7491322-9 (Version None)
Quarter: 2011Q2

REPORT INFORMATION
  Report Type: 
  Country: None (occurrence: None)
  Receive Date: 20110519
  Receipt Date: 20110513
  Transmission Date: 20111010
  Serious: Yes (Life-Threatening)
  Sender: FDA-Public Use
  Company Number: B0720200A

PATIENT
  Sex: Male

DRUGS (6)
  1. NOVORAPID [Concomitant]
     Route: 058
  2. PRIMASPAN [Concomitant]
     Indication: ILL-DEFINED DISORDER
     Route: 048
  3. ATACAND [Concomitant]
     Indication: HYPERTONIA
     Route: 048
  4. LANTUS [Concomitant]
     Route: 058
  5. PREDNISOLONE [Concomitant]
     Indication: IDIOPATHIC THROMBOCYTOPENIC PURPURA
     Route: 048
  6. PROMACTA [Suspect]
     Indication: IDIOPATHIC THROMBOCYTOPENIC PURPURA
     Route: 048
     Dates: start: 20110408, end: 20110427

REACTIONS (5)
  - DYSPNOEA [None]
  - SYNCOPE [None]
  - PULMONARY EMBOLISM [None]
  - VOLVULUS [None]
  - ABDOMINAL PAIN UPPER [None]
